FAERS Safety Report 8203188-X (Version None)
Quarter: 2012Q1

REPORT INFORMATION
  Report Type: 
  Country: None (occurrence: None)
  Receive Date: 20120312
  Receipt Date: 20120306
  Transmission Date: 20120608
  Serious: Yes (Other)
  Sender: FDA-Public Use
  Company Number: US-PFIZER INC-2011152956

PATIENT
  Sex: Male

DRUGS (1)
  1. CHANTIX [Suspect]
     Indication: SMOKING CESSATION THERAPY
     Dosage: 1 MG, 2X/DAY
     Route: 048
     Dates: start: 20080617

REACTIONS (6)
  - INTENTIONAL OVERDOSE [None]
  - SUICIDE ATTEMPT [None]
  - AGGRESSION [None]
  - NIGHTMARE [None]
  - DEPRESSION [None]
  - MYOCARDIAL INFARCTION [None]
